FAERS Safety Report 6243487-4 (Version None)
Quarter: 2009Q2

REPORT INFORMATION
  Report Type: 
  Country: None (occurrence: None)
  Receive Date: 20090618
  Receipt Date: 20081029
  Transmission Date: 20091009
  Serious: Yes (Other)
  Sender: FDA-Public Use
  Company Number: CIP08002116

PATIENT
  Age: 53 Year
  Sex: Female

DRUGS (5)
  1. ACTONEL [Suspect]
     Dosage: 35 MG ONCE WEEKLY, ORAL
     Route: 048
     Dates: start: 20060101
  2. CALCIUM (CALCIUM) [Concomitant]
  3. VIACTIV /00751501/ (CALCIUM) [Concomitant]
  4. ENBREL [Concomitant]
  5. ANTIINFLAMMATORY AGENTS [Concomitant]

REACTIONS (4)
  - ARTHRALGIA [None]
  - DRUG INEFFECTIVE [None]
  - RESORPTION BONE INCREASED [None]
  - SPINAL FUSION SURGERY [None]
